FAERS Safety Report 9774225 (Version 2)
Quarter: 2013Q4

REPORT INFORMATION
  Report Type: Report from Study
  Country: US (occurrence: US)
  Receive Date: 20131220
  Receipt Date: 20131231
  Transmission Date: 20140711
  Serious: Yes (Death)
  Sender: FDA-Public Use
  Company Number: US-ROCHE-1323166

PATIENT
  Age: 68 Year
  Sex: Male
  Weight: 84.1 kg

DRUGS (5)
  1. VALCYTE [Suspect]
     Indication: CYTOMEGALOVIRUS INFECTION
     Route: 048
  2. DIGOXIN [Concomitant]
     Indication: ATRIAL FIBRILLATION
     Route: 048
  3. FLUCONAZOLE [Concomitant]
     Route: 048
  4. SEPTRA DS [Concomitant]
     Dosage: DS. M/W/F
     Route: 048
  5. DILTIAZEM [Concomitant]
     Route: 048

REACTIONS (1)
  - Leukaemia recurrent [Fatal]
